FAERS Safety Report 19293227 (Version 1)
Quarter: 2021Q2

REPORT INFORMATION
  Report Type: Spontaneous
  Country: US (occurrence: US)
  Receive Date: 20210524
  Receipt Date: 20210524
  Transmission Date: 20210717
  Serious: No
  Sender: FDA-Public Use
  Company Number: US-TARO-2020TAR01498

PATIENT

DRUGS (3)
  1. TERCONAZOLE VAGINAL CREAM 0.8% [Suspect]
     Active Substance: TERCONAZOLE
     Indication: VULVOVAGINAL BURNING SENSATION
     Dosage: ONE TIME IN THE EVENING
     Route: 067
     Dates: start: 20200905
  2. DILTIAZEM. [Concomitant]
     Active Substance: DILTIAZEM
     Indication: PRODUCT USED FOR UNKNOWN INDICATION
     Dosage: UNK
     Route: 065
  3. TERCONAZOLE VAGINAL CREAM 0.8% [Suspect]
     Active Substance: TERCONAZOLE
     Indication: VULVOVAGINAL PRURITUS

REACTIONS (9)
  - Dizziness [Not Recovered/Not Resolved]
  - Headache [Not Recovered/Not Resolved]
  - Gastrooesophageal reflux disease [Not Recovered/Not Resolved]
  - Erythema [Not Recovered/Not Resolved]
  - Pain [Not Recovered/Not Resolved]
  - Burning sensation [Not Recovered/Not Resolved]
  - Illness [Not Recovered/Not Resolved]
  - Abdominal discomfort [Not Recovered/Not Resolved]
  - Vulvovaginal burning sensation [Not Recovered/Not Resolved]

NARRATIVE: CASE EVENT DATE: 20200906
